FAERS Safety Report 12645886 (Version 6)
Quarter: 2017Q3

REPORT INFORMATION
  Report Type: Spontaneous
  Country: DE (occurrence: DE)
  Receive Date: 20160811
  Receipt Date: 20170707
  Transmission Date: 20171127
  Serious: Yes (Death, Hospitalization, Disabling, Other)
  Sender: FDA-Public Use
  Company Number: DE-B.I. PHARMACEUTICALS,INC./RIDGEFIELD-2016-BI-52132DE

PATIENT
  Age: 53 Year
  Sex: Male

DRUGS (2)
  1. DAPAGLIFLOZIN. [Suspect]
     Active Substance: DAPAGLIFLOZIN
     Indication: PRODUCT USED FOR UNKNOWN INDICATION
     Route: 065
  2. PRAXBIND [Suspect]
     Active Substance: IDARUCIZUMAB
     Indication: ISCHAEMIC STROKE
     Route: 065
     Dates: start: 20160425, end: 20160425

REACTIONS (8)
  - Pulmonary embolism [Fatal]
  - Condition aggravated [Unknown]
  - Metabolic acidosis [Unknown]
  - Cardiovascular insufficiency [Unknown]
  - Respiratory failure [Unknown]
  - Respiratory fatigue [Unknown]
  - Endotracheal intubation [Unknown]
  - Cardiovascular disorder [Unknown]

NARRATIVE: CASE EVENT DATE: 20160427
